FAERS Safety Report 4411367-2 (Version None)
Quarter: 2004Q3

REPORT INFORMATION
  Report Type: 
  Country: None (occurrence: None)
  Receive Date: 20040727
  Receipt Date: 20040713
  Transmission Date: 20050211
  Serious: Yes (Hospitalization)
  Sender: FDA-Public Use
  Company Number: 2004AP03663

PATIENT
  Sex: Male

DRUGS (19)
  1. OMEPRAL [Suspect]
     Dosage: 40 MG DAILY IV
     Route: 042
     Dates: start: 20040622, end: 20040625
  2. OMEPRAL [Suspect]
     Dosage: 10 MG DAILY PO
     Route: 048
     Dates: start: 20040625, end: 20040701
  3. SEVOFRANE [Suspect]
     Dates: start: 20040622, end: 20040622
  4. LAMIVUDINE [Concomitant]
  5. ALOSENN [Concomitant]
  6. SOLITA T [Concomitant]
  7. XYLOCAINE [Concomitant]
  8. RAVONAL [Concomitant]
  9. FENTANEST [Concomitant]
  10. MUSCULAX [Concomitant]
  11. ATROPINE SULFATE [Concomitant]
  12. VAGOSTIGMIN #1 [Concomitant]
  13. CEFAZOLIN [Concomitant]
  14. ATARAX [Concomitant]
  15. LENDORM [Concomitant]
  16. ALDACTONE-A [Concomitant]
  17. TIENAM [Concomitant]
  18. MARCAINE [Concomitant]
  19. NEO-MINOPHAGEN [Concomitant]

REACTIONS (1)
  - RHABDOMYOLYSIS [None]
